FAERS Safety Report 13038078 (Version 1)
Quarter: 2016Q4

REPORT INFORMATION
  Report Type: Spontaneous
  Country: US (occurrence: US)
  Receive Date: 20161214
  Receipt Date: 20161214
  Transmission Date: 20170207
  Serious: Yes (Hospitalization)
  Sender: FDA-Public Use
  Company Number: None

PATIENT
  Age: 61 Year
  Sex: Female
  Weight: 72 kg

DRUGS (33)
  1. DELTASONE [Concomitant]
     Active Substance: PREDNISONE
  2. ALBUTEROL(PROAIR HFA) [Concomitant]
  3. CINACALCET [Concomitant]
     Active Substance: CINACALCET
  4. LACTULOSE. [Concomitant]
     Active Substance: LACTULOSE
  5. ONDANSETRON [Concomitant]
     Active Substance: ONDANSETRON
  6. CARVEDILOL. [Concomitant]
     Active Substance: CARVEDILOL
  7. GUAIFENESIN. [Concomitant]
     Active Substance: GUAIFENESIN
  8. MAGNESIUM OXIDE. [Concomitant]
     Active Substance: MAGNESIUM OXIDE
  9. POLYETHYLENE GLYCOL(MIRALAX) [Concomitant]
  10. ZINC SULFATE [Concomitant]
     Active Substance: ZINC SULFATE\ZINC SULFATE ANHYDROUS
  11. AMMONIUM LACTATE. [Concomitant]
     Active Substance: AMMONIUM LACTATE
  12. BUPROPION. [Concomitant]
     Active Substance: BUPROPION
  13. AMLODIPINE [Concomitant]
     Active Substance: AMLODIPINE BESYLATE
  14. CLONAZEPAM. [Concomitant]
     Active Substance: CLONAZEPAM
  15. FLUTICASONE-SALMETEROL [Concomitant]
  16. ISOSORBIDE MONONITRATE. [Concomitant]
     Active Substance: ISOSORBIDE MONONITRATE
  17. POTASSIUM CHLORIDE. [Concomitant]
     Active Substance: POTASSIUM CHLORIDE
  18. TIOTROPIUM [Concomitant]
     Active Substance: TIOTROPIUM
  19. VENLAFAXINE [Concomitant]
     Active Substance: VENLAFAXINE HYDROCHLORIDE
  20. ZEMPLAR [Concomitant]
     Active Substance: PARICALCITOL
  21. DICLOFENAC [Concomitant]
     Active Substance: DICLOFENAC
  22. LISINOPRIL. [Concomitant]
     Active Substance: LISINOPRIL
  23. SEVELAMER [Concomitant]
     Active Substance: SEVELAMER
  24. ELBASVIR/GRAZOPREVIR 50-100 MG MERCK + CO., INC. [Suspect]
     Active Substance: ELBASVIR\GRAZOPREVIR
     Indication: HEPATITIS C
     Route: 048
     Dates: start: 20160621, end: 20160801
  25. B COMPLEX-VITAMIN C-FOLIC ACID [Concomitant]
  26. BISACODYL. [Concomitant]
     Active Substance: BISACODYL
  27. GENTAMICIN. [Concomitant]
     Active Substance: GENTAMICIN
  28. PANTOPRAZOLE [Concomitant]
     Active Substance: PANTOPRAZOLE SODIUM
  29. SENNA [Concomitant]
     Active Substance: SENNA LEAF\SENNOSIDES\SENNOSIDES A AND B
  30. TRIAMCINOLONE [Concomitant]
     Active Substance: TRIAMCINOLONE
  31. LAMISIL [Concomitant]
     Active Substance: TERBINAFINE HYDROCHLORIDE
  32. LORATADINE. [Concomitant]
     Active Substance: LORATADINE
  33. EPOETIN ALFA [Concomitant]
     Active Substance: ERYTHROPOIETIN

REACTIONS (7)
  - Dyspnoea exertional [None]
  - Asthenia [None]
  - Gait disturbance [None]
  - Back pain [None]
  - Hypoaesthesia [None]
  - Paraesthesia [None]
  - Memory impairment [None]

NARRATIVE: CASE EVENT DATE: 20160720
